FAERS Safety Report 7171449-1 (Version None)
Quarter: 2010Q4

REPORT INFORMATION
  Report Type: 
  Country: None (occurrence: None)
  Receive Date: 20101123
  Receipt Date: 20100805
  Transmission Date: 20110411
  Serious: No
  Sender: FDA-Public Use
  Company Number: 016831

PATIENT
  Sex: Male
  Weight: 72.6 kg

DRUGS (3)
  1. CIMZIA [Suspect]
     Indication: ARTHRITIS ENTEROPATHIC
     Dosage: (400 MG 1X/2 WEEKS , INJECT ABD SUBCUTANEOUS)
     Route: 058
     Dates: start: 20100804
  2. PREDNISONE [Concomitant]
  3. VITAMINS /90003601/ [Concomitant]

REACTIONS (4)
  - DIZZINESS [None]
  - HYPERHIDROSIS [None]
  - NAUSEA [None]
  - PRESYNCOPE [None]
